FAERS Safety Report 9932646 (Version 1)
Quarter: 2014Q1

REPORT INFORMATION
  Report Type: Spontaneous
  Country: US (occurrence: US)
  Receive Date: 20140228
  Receipt Date: 20140228
  Transmission Date: 20141002
  Serious: No
  Sender: FDA-Public Use
  Company Number: US-GLAXOSMITHKLINE-A1017751A

PATIENT
  Age: 47 Year
  Sex: Female
  Weight: 68.2 kg

DRUGS (3)
  1. SUMATRIPTAN [Suspect]
     Indication: MIGRAINE
     Dosage: 6MG AS REQUIRED
     Route: 042
  2. SUMATRIPTAN AUTOINJECTOR [Suspect]
     Indication: MIGRAINE
     Route: 065
  3. SUMATRIPTAN [Concomitant]
     Dosage: 100MG AS REQUIRED
     Route: 048

REACTIONS (4)
  - Injection site haemorrhage [Unknown]
  - Drug ineffective [Unknown]
  - Product quality issue [Unknown]
  - Drug administration error [Unknown]
